FAERS Safety Report 10371445 (Version 1)
Quarter: 2014Q3

REPORT INFORMATION
  Report Type: Spontaneous
  Country: JP (occurrence: JP)
  Receive Date: 20140808
  Receipt Date: 20140808
  Transmission Date: 20150326
  Serious: Yes (Death, Other)
  Sender: FDA-Public Use
  Company Number: PHHY2012JP134010

PATIENT
  Age: 60 Year

DRUGS (2)
  1. GLIVEC [Suspect]
     Active Substance: IMATINIB MESYLATE
     Indication: CHRONIC MYELOID LEUKAEMIA
  2. GEMZAR [Suspect]
     Active Substance: GEMCITABINE HYDROCHLORIDE

REACTIONS (3)
  - Metastases to liver [Unknown]
  - Death [Fatal]
  - Pancreatic carcinoma [Unknown]
